FAERS Safety Report 8783343 (Version 4)
Quarter: 2012Q4

REPORT INFORMATION
  Report Type: 
  Country: US (occurrence: US)
  Receive Date: 20120913
  Receipt Date: 20121023
  Transmission Date: 20130627
  Serious: No
  Sender: FDA-Public Use
  Company Number: US-PFIZER INC-2012223970

PATIENT
  Age: 62 Year
  Sex: Male
  Weight: 72.6 kg

DRUGS (12)
  1. METAXALONE [Suspect]
     Indication: MUSCLE STRAIN
     Dosage: 800 mg, Every 8 hours
     Route: 048
     Dates: start: 20120907, end: 20120913
  2. METAXALONE [Suspect]
     Indication: MUSCLE STRAIN
  3. METAXALONE [Suspect]
     Indication: MUSCLE SPASMS
  4. METAXALONE [Suspect]
     Indication: SPINAL COLUMN INJURY
  5. FLEXERIL [Suspect]
     Indication: BACK DISORDER
     Dosage: UNK, every 4 hrs
  6. FLEXERIL [Suspect]
     Indication: MUSCLE STRAIN
  7. OXYCODONE [Concomitant]
     Dosage: 30 mg, 4x/day (years)
  8. DURAGESIC [Concomitant]
     Dosage: 25 mcg per hr every 72 hours
     Dates: start: 201210
  9. LYRICA [Concomitant]
     Dosage: 75 mg, 2x/day (on for least a year)
     Dates: start: 2011
  10. PRISTIQ [Concomitant]
     Dosage: 100 mg, daily (3-4 years)
     Route: 048
  11. OMEPRAZOLE [Concomitant]
     Dosage: 20 mg, 2x/day (15 years)
  12. SPIRIVA [Concomitant]
     Dosage: UNK, twice daily (2 months)

REACTIONS (2)
  - Drug ineffective [Not Recovered/Not Resolved]
  - Pain [Not Recovered/Not Resolved]
